FAERS Safety Report 22288358 (Version 1)
Quarter: 2023Q2

REPORT INFORMATION
  Report Type: Spontaneous
  Country: US (occurrence: None)
  Receive Date: 20230504
  Receipt Date: 20230504
  Transmission Date: 20230721
  Serious: Yes (Hospitalization)
  Sender: FDA-Public Use
  Company Number: None

PATIENT
  Age: 78 Year
  Sex: Female
  Weight: 47.9 kg

DRUGS (7)
  1. CAPECITABINE [Suspect]
     Active Substance: CAPECITABINE
     Indication: Colon cancer
     Dosage: FREQUENCY : TWICE A DAY;?
     Route: 048
     Dates: start: 202304
  2. AMIODARONE [Concomitant]
     Active Substance: AMIODARONE
  3. COLCAE [Concomitant]
  4. MULTIVITAMIN [Concomitant]
  5. VALSARTAN [Concomitant]
     Active Substance: VALSARTAN
  6. XARELTO [Concomitant]
     Active Substance: RIVAROXABAN
  7. ZOFRAN [Concomitant]
     Active Substance: ONDANSETRON HYDROCHLORIDE

REACTIONS (1)
  - Hospitalisation [None]
